FAERS Safety Report 13292768 (Version 5)
Quarter: 2017Q3

REPORT INFORMATION
  Report Type: Spontaneous
  Country: US (occurrence: US)
  Receive Date: 20170303
  Receipt Date: 20170811
  Transmission Date: 20171127
  Serious: No
  Sender: FDA-Public Use
  Company Number: PHEH2017US006466

PATIENT
  Sex: Female
  Weight: 94.79 kg

DRUGS (3)
  1. ZOFRAN [Suspect]
     Active Substance: ONDANSETRON HYDROCHLORIDE
     Indication: PRODUCT USED FOR UNKNOWN INDICATION
     Route: 048
  2. ONDANSETRON [Suspect]
     Active Substance: ONDANSETRON
     Indication: HYPEREMESIS GRAVIDARUM
     Dosage: 4 MG, UNK
     Route: 048
     Dates: start: 20140126, end: 201405
  3. ZOFRAN ODT [Suspect]
     Active Substance: ONDANSETRON HYDROCHLORIDE
     Indication: VOMITING IN PREGNANCY
     Dosage: 4 MG, Q8H
     Route: 048
     Dates: start: 20140126, end: 20140202

REACTIONS (11)
  - Bacterial vaginosis [Unknown]
  - Maternal exposure during pregnancy [Unknown]
  - Product use in unapproved indication [Unknown]
  - Pain [Unknown]
  - Abdominal pain lower [Unknown]
  - Constipation [Unknown]
  - Emotional distress [Unknown]
  - Bronchitis [Unknown]
  - Dehydration [Unknown]
  - Urinary tract infection [Unknown]
  - Anxiety [Unknown]
